FAERS Safety Report 10573592 (Version 1)
Quarter: 2014Q4

REPORT INFORMATION
  Report Type: Spontaneous
  Country: US (occurrence: US)
  Receive Date: 20141110
  Receipt Date: 20141110
  Transmission Date: 20150529
  Serious: Yes (Other)
  Sender: FDA-Public Use
  Company Number: 2014SP003548

PATIENT
  Age: 89 Year
  Sex: Female
  Weight: 61 kg

DRUGS (5)
  1. ALL OTHER THERAPEUTIC PRODUCTS [Concomitant]
     Active Substance: UNSPECIFIED INGREDIENT
  2. LATUDA [Suspect]
     Active Substance: LURASIDONE HYDROCHLORIDE
     Indication: DEMENTIA
     Route: 048
     Dates: start: 201409, end: 201409
  3. TRAZODONE [Concomitant]
     Active Substance: TRAZODONE HYDROCHLORIDE
     Indication: SLEEP DISORDER
     Route: 048
  4. LATUDA [Suspect]
     Active Substance: LURASIDONE HYDROCHLORIDE
     Indication: DEMENTIA
     Route: 048
  5. LATUDA [Suspect]
     Active Substance: LURASIDONE HYDROCHLORIDE
     Indication: DEMENTIA
     Route: 048
     Dates: start: 201409

REACTIONS (4)
  - Fall [Unknown]
  - Aggression [Unknown]
  - Off label use [None]
  - Gait disturbance [Recovered/Resolved]

NARRATIVE: CASE EVENT DATE: 201410
